FAERS Safety Report 8534084-6 (Version None)
Quarter: 2012Q3

REPORT INFORMATION
  Report Type: 
  Country: None (occurrence: None)
  Receive Date: 20120724
  Receipt Date: 20120716
  Transmission Date: 20120928
  Serious: Yes (Hospitalization, Other)
  Sender: FDA-Public Use
  Company Number: US-VERTEX PHARMACEUTICALS INC.-AE-2012-010498

PATIENT
  Sex: Male
  Weight: 67.646 kg

DRUGS (3)
  1. PEGINTERFERON ALFA-2A [Concomitant]
     Indication: HEPATITIS C
  2. INCIVEK [Suspect]
     Indication: HEPATITIS C
     Route: 048
  3. RIBAVIRIN [Concomitant]
     Indication: HEPATITIS C

REACTIONS (10)
  - VISUAL IMPAIRMENT [None]
  - ALOPECIA [None]
  - RASH [None]
  - FATIGUE [None]
  - ESCHERICHIA INFECTION [None]
  - ANAEMIA [None]
  - INSOMNIA [None]
  - EPISTAXIS [None]
  - CONSTIPATION [None]
  - GINGIVAL BLEEDING [None]
